FAERS Safety Report 24575507 (Version 1)
Quarter: 2024Q4

REPORT INFORMATION
  Report Type: Spontaneous
  Country: ET (occurrence: ET)
  Receive Date: 20241104
  Receipt Date: 20241104
  Transmission Date: 20250115
  Serious: Yes (Other)
  Sender: NOVARTIS
  Company Number: ET-002147023-NVSC2024ET211214

PATIENT
  Age: 71 Year
  Sex: Male

DRUGS (1)
  1. IMATINIB [Suspect]
     Active Substance: IMATINIB
     Indication: Chronic myeloid leukaemia
     Dosage: UNK
     Route: 048

REACTIONS (1)
  - Chronic kidney disease [Unknown]
